FAERS Safety Report 23858896 (Version 4)
Quarter: 2025Q2

REPORT INFORMATION
  Report Type: Report from Study
  Country: BE (occurrence: BE)
  Receive Date: 20240515
  Receipt Date: 20250626
  Transmission Date: 20250716
  Serious: Yes (Other)
  Sender: TAKEDA
  Company Number: BE-TAKEDA-2024TUS046774

PATIENT
  Age: 72 Year
  Sex: Male

DRUGS (4)
  1. BRIGATINIB [Suspect]
     Active Substance: BRIGATINIB
     Indication: Product used for unknown indication
     Dates: start: 20240306, end: 20240313
  2. BRIGATINIB [Suspect]
     Active Substance: BRIGATINIB
  3. BRIGATINIB [Suspect]
     Active Substance: BRIGATINIB
  4. BRIGATINIB [Suspect]
     Active Substance: BRIGATINIB

REACTIONS (5)
  - Myopathy toxic [Recovered/Resolved]
  - Pancreatic toxicity [Recovered/Resolved]
  - Metastases to central nervous system [Unknown]
  - Blood creatine phosphokinase increased [Unknown]
  - Hypertension [Recovered/Resolved]

NARRATIVE: CASE EVENT DATE: 20240402
